FAERS Safety Report 18212862 (Version 1)
Quarter: 2020Q3

REPORT INFORMATION
  Report Type: Spontaneous
  Country: US (occurrence: US)
  Receive Date: 20200828
  Receipt Date: 20200828
  Transmission Date: 20201103
  Serious: Yes (Hospitalization)
  Sender: FDA-Public Use
  Company Number: None

PATIENT
  Age: 76 Year
  Sex: Male

DRUGS (7)
  1. AMOXICILLIN. [Concomitant]
     Active Substance: AMOXICILLIN
  2. METOPROL TAR [Concomitant]
  3. LASIX [Concomitant]
     Active Substance: FUROSEMIDE
  4. PREDNISONE. [Concomitant]
     Active Substance: PREDNISONE
  5. COENZYME Q10 [Concomitant]
     Active Substance: DIETARY SUPPLEMENT\UBIDECARENONE
  6. ESBRIET [Suspect]
     Active Substance: PIRFENIDONE
     Indication: IDIOPATHIC PULMONARY FIBROSIS
     Route: 048
     Dates: start: 20191015
  7. MULTIPLE VIT [Concomitant]

REACTIONS (1)
  - Rib fracture [None]

NARRATIVE: CASE EVENT DATE: 20200825
